FAERS Safety Report 17724978 (Version 1)
Quarter: 2020Q2

REPORT INFORMATION
  Report Type: Spontaneous
  Country: US (occurrence: US)
  Receive Date: 20200429
  Receipt Date: 20200429
  Transmission Date: 20200714
  Serious: No
  Sender: FDA-Public Use
  Company Number: US-GRANULES INDIA LIMITED-2083319

PATIENT
  Age: 55 Year
  Sex: Male
  Weight: 98.18 kg

DRUGS (2)
  1. FEXOFENADINE HCL [Suspect]
     Active Substance: FEXOFENADINE HYDROCHLORIDE
     Indication: RHINORRHOEA
     Route: 048
  2. TRAZODONE [Concomitant]
     Active Substance: TRAZODONE HYDROCHLORIDE
     Route: 065

REACTIONS (2)
  - Intentional product use issue [Unknown]
  - Drug ineffective [Unknown]
